FAERS Safety Report 18941710 (Version 1)
Quarter: 2021Q1

REPORT INFORMATION
  Report Type: Spontaneous
  Country: US (occurrence: US)
  Receive Date: 20210225
  Receipt Date: 20210225
  Transmission Date: 20210420
  Serious: Yes (Hospitalization, Other)
  Sender: FDA-Public Use
  Company Number: US-BRACCO-2020US02191

PATIENT
  Age: 69 Year
  Sex: Male

DRUGS (3)
  1. TECHNETIUM (99MTC) METHYLENEDIPHOSPHONATE [Concomitant]
     Dosage: 26.20 MCI
     Dates: start: 20200529
  2. ISOVUE 370 [Suspect]
     Active Substance: IOPAMIDOL
     Indication: COMPUTERISED TOMOGRAM
     Dosage: 93 ML, SINGLE
     Route: 042
     Dates: start: 20200529, end: 20200529
  3. OMNIPAQUE [Concomitant]
     Active Substance: IOHEXOL
     Dosage: 1000 ML
     Route: 048
     Dates: start: 20200529, end: 20200529

REACTIONS (2)
  - Anaphylactic reaction [Recovered/Resolved]
  - Hypertension [Recovered/Resolved]

NARRATIVE: CASE EVENT DATE: 20200529
